FAERS Safety Report 10417172 (Version 2)
Quarter: 2014Q3

REPORT INFORMATION
  Report Type: Spontaneous
  Country: US (occurrence: US)
  Receive Date: 20140828
  Receipt Date: 20140903
  Transmission Date: 20150326
  Serious: Yes (Other)
  Sender: FDA-Public Use
  Company Number: US-ELI_LILLY_AND_COMPANY-US201408008163

PATIENT
  Sex: Male

DRUGS (1)
  1. CYMBALTA [Suspect]
     Active Substance: DULOXETINE HYDROCHLORIDE
     Indication: DEPRESSION
     Dosage: 60 MG, QD
     Route: 065

REACTIONS (7)
  - Stress [Unknown]
  - Dry mouth [Unknown]
  - Drug ineffective [Unknown]
  - Tremor [Unknown]
  - Weight decreased [Unknown]
  - Suicidal ideation [Unknown]
  - Erectile dysfunction [Unknown]
